FAERS Safety Report 15986139 (Version 2)
Quarter: 2019Q1

REPORT INFORMATION
  Report Type: Spontaneous
  Country: FR (occurrence: FR)
  Receive Date: 20190220
  Receipt Date: 20190221
  Transmission Date: 20190418
  Serious: Yes (Other)
  Sender: FDA-Public Use
  Company Number: FR-TEVA-2019-FR-1013690

PATIENT
  Age: 49 Year
  Sex: Male

DRUGS (4)
  1. EFFENTORA 200 MCG [Suspect]
     Active Substance: FENTANYL CITRATE
     Dosage: 3-4 TABLETS PER DAY
     Route: 065
     Dates: start: 20190204
  2. EFFENTORA 200 MCG [Suspect]
     Active Substance: FENTANYL CITRATE
     Dosage: 800 MICROGRAM DAILY;
     Route: 065
  3. EFFENTORA 200 MCG [Suspect]
     Active Substance: FENTANYL CITRATE
     Indication: PAIN
     Dosage: 2400 MICROGRAM DAILY;
     Route: 065
  4. DURAGESIC [Suspect]
     Active Substance: FENTANYL
     Dosage: 125 MG/H PATCHED CHANGED EVERY 72 H
     Dates: start: 20190204

REACTIONS (4)
  - Intentional product misuse [Unknown]
  - Drug dependence [Unknown]
  - Product use in unapproved indication [Unknown]
  - Withdrawal syndrome [Unknown]

NARRATIVE: CASE EVENT DATE: 20190208
